FAERS Safety Report 10160044 (Version 1)
Quarter: 2014Q2

REPORT INFORMATION
  Report Type: Spontaneous
  Country: US (occurrence: US)
  Receive Date: 20140508
  Receipt Date: 20140508
  Transmission Date: 20141212
  Serious: No
  Sender: FDA-Public Use
  Company Number: US-GLAXOSMITHKLINE-A1058722A

PATIENT
  Age: 80 Year
  Sex: Female

DRUGS (5)
  1. TYKERB [Suspect]
     Indication: BREAST CANCER
     Dosage: 250MG UNKNOWN
     Route: 065
     Dates: start: 20131017
  2. FEMARA [Concomitant]
  3. OXYCONTIN [Concomitant]
  4. PRILOSEC [Concomitant]
  5. AMLODIPINE [Concomitant]

REACTIONS (5)
  - Adverse drug reaction [Recovering/Resolving]
  - Dysuria [Recovering/Resolving]
  - Burning sensation [Recovering/Resolving]
  - Diarrhoea [Recovering/Resolving]
  - Anorectal discomfort [Recovering/Resolving]
